FAERS Safety Report 18480831 (Version 1)
Quarter: 2020Q4

REPORT INFORMATION
  Report Type: Spontaneous
  Country: FR (occurrence: FR)
  Receive Date: 20201109
  Receipt Date: 20201109
  Transmission Date: 20210114
  Serious: Yes (Hospitalization)
  Sender: FDA-Public Use
  Company Number: FR-UCBSA-2020043546

PATIENT
  Age: 14 Year
  Sex: Male
  Weight: 44 kg

DRUGS (1)
  1. VIMPAT [Suspect]
     Active Substance: LACOSAMIDE
     Indication: INCORRECT DOSAGE ADMINISTERED
     Dosage: 400 MILLIGRAM, ONE TIME DOSE
     Route: 048
     Dates: start: 20201001, end: 20201001

REACTIONS (6)
  - Somnolence [Recovered/Resolved]
  - Behaviour disorder [Recovered/Resolved]
  - Hallucination [Recovered/Resolved]
  - Incorrect dosage administered [Unknown]
  - Epilepsy [Recovered/Resolved]
  - Accidental overdose [Unknown]

NARRATIVE: CASE EVENT DATE: 20201001
